FAERS Safety Report 17050174 (Version 3)
Quarter: 2020Q1

REPORT INFORMATION
  Report Type: Spontaneous
  Country: US (occurrence: US)
  Receive Date: 20191119
  Receipt Date: 20200110
  Transmission Date: 20200409
  Serious: Yes (Hospitalization)
  Sender: FDA-Public Use
  Company Number: NVSC2019US040125

PATIENT
  Sex: Male

DRUGS (2)
  1. ENTRESTO [Suspect]
     Active Substance: SACUBITRIL\VALSARTAN
     Indication: LEFT VENTRICULAR FAILURE
     Dosage: 50 MG, BID
     Route: 048
     Dates: start: 20191110, end: 20191112
  2. ENTRESTO [Suspect]
     Active Substance: SACUBITRIL\VALSARTAN
     Dosage: UNK
     Route: 065

REACTIONS (5)
  - Abdominal pain [Unknown]
  - Pancreatitis [Unknown]
  - Nausea [Unknown]
  - Vomiting [Unknown]
  - Diabetic gastroparesis [Unknown]
